FAERS Safety Report 7629332-0 (Version None)
Quarter: 2011Q3

REPORT INFORMATION
  Report Type: 
  Country: None (occurrence: None)
  Receive Date: 20110722
  Receipt Date: 20110709
  Transmission Date: 20111222
  Serious: Yes (Other)
  Sender: FDA-Public Use
  Company Number: US-BAYER-2011-060777

PATIENT
  Age: 32 Year
  Sex: Female
  Weight: 118.82 kg

DRUGS (2)
  1. METFORMIN HCL [Concomitant]
     Indication: POLYCYSTIC OVARIES
  2. ALEVE (CAPLET) [Suspect]
     Dosage: 220 MG, ONCE
     Route: 048
     Dates: start: 20110709, end: 20110709

REACTIONS (4)
  - ASTHMA [None]
  - PARAESTHESIA [None]
  - CHEST DISCOMFORT [None]
  - HYPOAESTHESIA [None]
